FAERS Safety Report 5624207-0 (Version None)
Quarter: 2008Q1

REPORT INFORMATION
  Report Type: 
  Country: None (occurrence: None)
  Receive Date: 20080213
  Receipt Date: 20080205
  Transmission Date: 20080703
  Serious: Yes (Hospitalization)
  Sender: FDA-Public Use
  Company Number: IT-BAYER-200713502GDS

PATIENT
  Age: 84 Year
  Sex: Male

DRUGS (4)
  1. ASPIRIN [Suspect]
     Indication: ANTICOAGULANT THERAPY
     Dosage: TOTAL DAILY DOSE: 100 MG  UNIT DOSE: 100 MG
     Route: 048
     Dates: start: 20000601, end: 20070618
  2. CONTRAMAL [Concomitant]
     Indication: OSTEOARTHRITIS
     Dosage: TOTAL DAILY DOSE: 50 MG  UNIT DOSE: 50 MG
     Route: 048
     Dates: start: 20060610, end: 20070618
  3. CARDIRENE [Concomitant]
     Indication: MYALGIA
     Dosage: TOTAL DAILY DOSE: 160 MG  UNIT DOSE: 160 MG
     Route: 048
     Dates: start: 20060610, end: 20060618
  4. LOSAPREX [Concomitant]
     Indication: HYPERTENSION
     Dosage: TOTAL DAILY DOSE: 50 MG  UNIT DOSE: 50 MG
     Route: 048
     Dates: start: 20000601, end: 20070618

REACTIONS (4)
  - ANAEMIA [None]
  - DUODENAL ULCER HAEMORRHAGE [None]
  - GASTRIC ULCER HAEMORRHAGE [None]
  - INTESTINAL ULCER [None]
